FAERS Safety Report 19158135 (Version 1)
Quarter: 2021Q2

REPORT INFORMATION
  Report Type: Report from Study
  Country: None (occurrence: US)
  Receive Date: 20210420
  Receipt Date: 20210420
  Transmission Date: 20210717
  Serious: Yes (Other)
  Sender: FDA-Public Use
  Company Number: US-ABBVIE-21K-163-3862583-00

PATIENT
  Age: 85 Year
  Sex: Female

DRUGS (4)
  1. LOSARTAN. [Concomitant]
     Active Substance: LOSARTAN
     Indication: PRODUCT USED FOR UNKNOWN INDICATION
  2. COUMADIN [Concomitant]
     Active Substance: WARFARIN SODIUM
     Indication: PRODUCT USED FOR UNKNOWN INDICATION
  3. SPIRONOLACTONE. [Concomitant]
     Active Substance: SPIRONOLACTONE
     Indication: PRODUCT USED FOR UNKNOWN INDICATION
     Dosage: HALF
  4. IMBRUVICA [Suspect]
     Active Substance: IBRUTINIB
     Indication: MANTLE CELL LYMPHOMA
     Route: 048
     Dates: start: 202104

REACTIONS (14)
  - Mental impairment [Unknown]
  - Frustration tolerance decreased [Unknown]
  - Nightmare [Unknown]
  - Oxygen saturation decreased [Unknown]
  - Aspiration pleural cavity [Unknown]
  - Tremor [Unknown]
  - Gait inability [Unknown]
  - Haemorrhoids [Unknown]
  - Epistaxis [Unknown]
  - Memory impairment [Unknown]
  - Blood pressure decreased [Unknown]
  - Cyanosis [Unknown]
  - Depression [Unknown]
  - Sleep deficit [Unknown]

NARRATIVE: CASE EVENT DATE: 202104
